FAERS Safety Report 5940693-0 (Version None)
Quarter: 2008Q4

REPORT INFORMATION
  Report Type: 
  Country: None (occurrence: None)
  Receive Date: 20081104
  Receipt Date: 20081023
  Transmission Date: 20090506
  Serious: Yes (Hospitalization, Disabling)
  Sender: FDA-Public Use
  Company Number: HQWYE388122NOV06

PATIENT
  Age: 69 Year
  Sex: Male

DRUGS (2)
  1. CORDARONE [Suspect]
     Route: 048
     Dates: start: 20060101, end: 20061101
  2. DIOVAN HCT [Concomitant]
     Indication: HYPERTENSION
     Dosage: 80/12.5 MG, FREQUENCY UNSPECIFIED
     Route: 048

REACTIONS (2)
  - OPTIC NEURITIS [None]
  - RETINAL DETACHMENT [None]
